FAERS Safety Report 5009706-7 (Version None)
Quarter: 2006Q2

REPORT INFORMATION
  Report Type: 
  Country: None (occurrence: None)
  Receive Date: 20060523
  Receipt Date: 20060510
  Transmission Date: 20061013
  Serious: Yes (Hospitalization, Other)
  Sender: FDA-Public Use
  Company Number: 2006064480

PATIENT
  Age: 28 Year
  Sex: Female

DRUGS (1)
  1. BEXTRA [Suspect]
     Indication: MUSCLE SPASMS
     Dosage: 10 MG (10 MG, 1 IN 1 D)
     Dates: start: 20020501

REACTIONS (7)
  - BACK INJURY [None]
  - CARDIAC FAILURE CONGESTIVE [None]
  - DEEP VEIN THROMBOSIS [None]
  - NEPHROLITHIASIS [None]
  - ORGAN FAILURE [None]
  - THROMBOTIC STROKE [None]
  - TRANSIENT ISCHAEMIC ATTACK [None]
